FAERS Safety Report 6295543-2 (Version None)
Quarter: 2009Q3

REPORT INFORMATION
  Report Type: 
  Country: None (occurrence: None)
  Receive Date: 20090731
  Receipt Date: 20090722
  Transmission Date: 20100115
  Serious: Yes (Hospitalization)
  Sender: FDA-Public Use
  Company Number: 09-001196

PATIENT
  Age: 58 Year
  Sex: Female
  Weight: 69.4 kg

DRUGS (4)
  1. ESTRACE [Suspect]
     Indication: ATROPHIC VULVOVAGINITIS
     Dosage: QD, TOPICAL
     Route: 061
     Dates: start: 20090601, end: 20090601
  2. WELLBUTRIN [Concomitant]
  3. PRAVACHOL [Concomitant]
  4. ABILIFY [Concomitant]

REACTIONS (8)
  - BLISTER [None]
  - CONFUSIONAL STATE [None]
  - PYREXIA [None]
  - RASH [None]
  - SCAR [None]
  - VULVOVAGINAL BURNING SENSATION [None]
  - VULVOVAGINAL PAIN [None]
  - VULVOVAGINAL PRURITUS [None]
